FAERS Safety Report 4853870-7 (Version None)
Quarter: 2005Q4

REPORT INFORMATION
  Report Type: 
  Country: None (occurrence: None)
  Receive Date: 20051213
  Receipt Date: 20051128
  Transmission Date: 20060501
  Serious: Yes (Other)
  Sender: FDA-Public Use
  Company Number: US200511003061

PATIENT
  Sex: Female

DRUGS (3)
  1. CYMBALTA [Suspect]
     Indication: PAIN
  2. ULTRAM [Concomitant]
  3. LEXAPRO /USA/ (ESCITALOPRAM) [Concomitant]

REACTIONS (1)
  - SEROTONIN SYNDROME [None]
